FAERS Safety Report 6126781-7 (Version None)
Quarter: 2009Q1

REPORT INFORMATION
  Report Type: 
  Country: None (occurrence: None)
  Receive Date: 20090320
  Receipt Date: 20090311
  Transmission Date: 20090719
  Serious: Yes (Other)
  Sender: FDA-Public Use
  Company Number: FR-PFIZER INC-2009181970

PATIENT

DRUGS (2)
  1. TAHOR [Suspect]
     Indication: HYPERCHOLESTEROLAEMIA
     Dosage: 10MG
  2. SPIRONOLACTONE [Concomitant]

REACTIONS (2)
  - MYALGIA [None]
  - PLEURAL EFFUSION [None]
